FAERS Safety Report 8959963 (Version 2)
Quarter: 2013Q3

REPORT INFORMATION
  Report Type: Spontaneous
  Country: US (occurrence: US)
  Receive Date: 20121211
  Receipt Date: 20130820
  Transmission Date: 20140515
  Serious: Yes (Hospitalization, Other)
  Sender: FDA-Public Use
  Company Number: CHPA2012US024630

PATIENT
  Age: 72 Year
  Sex: Male

DRUGS (3)
  1. EXCEDRIN EXTRA STRENGTH [Suspect]
     Indication: HEADACHE
     Dosage: 4 DF, QD
     Route: 048
  2. EXCEDRIN EXTRA STRENGTH [Suspect]
     Dosage: 12 DF, QD
     Route: 048
  3. LISINOPRIL [Concomitant]
     Dosage: UNK, UNK

REACTIONS (6)
  - Myocardial infarction [Recovered/Resolved]
  - Arterial occlusive disease [Unknown]
  - Blood cholesterol increased [Not Recovered/Not Resolved]
  - Headache [Unknown]
  - Overdose [Unknown]
  - Incorrect drug administration duration [Unknown]
